FAERS Safety Report 9036784 (Version 1)
Quarter: 2013Q1

REPORT INFORMATION
  Report Type: Spontaneous
  Country: US (occurrence: None)
  Receive Date: 20130123
  Receipt Date: 20130123
  Transmission Date: 20140127
  Serious: Yes (Other)
  Sender: FDA-Public Use
  Company Number: None

PATIENT
  Age: 65 Year
  Sex: Female
  Weight: 74.39 kg

DRUGS (2)
  1. AVELOX, 400 MG, SCHERING CORP [Suspect]
     Indication: SINUSITIS
     Route: 048
     Dates: start: 20130117, end: 20130119
  2. AVELOX, 400 MG, SCHERING CORP [Suspect]
     Indication: UPPER RESPIRATORY TRACT CONGESTION
     Route: 048
     Dates: start: 20130117, end: 20130119

REACTIONS (2)
  - Rash [None]
  - Sleep disorder [None]
